FAERS Safety Report 24458455 (Version 1)
Quarter: 2024Q4

REPORT INFORMATION
  Report Type: Report from Study
  Country: US (occurrence: US)
  Receive Date: 20241018
  Receipt Date: 20241018
  Transmission Date: 20250115
  Serious: No
  Sender: ROCHE
  Company Number: US-ROCHE-3517590

PATIENT
  Age: 81 Year
  Sex: Male

DRUGS (1)
  1. RITUXAN [Suspect]
     Active Substance: RITUXIMAB
     Indication: Rheumatoid arthritis
     Dosage: WEEK 0 AND WEEK 2 AND REPEAT EVERY 16 WEEK(S)
     Route: 041

REACTIONS (5)
  - Photosensitivity reaction [Unknown]
  - Dry skin [Unknown]
  - Eye pruritus [Unknown]
  - Rash [Unknown]
  - Feeling hot [Unknown]
